FAERS Safety Report 9028462 (Version 1)
Quarter: 2013Q1

REPORT INFORMATION
  Report Type: Spontaneous
  Country: NL (occurrence: NL)
  Receive Date: 20130124
  Receipt Date: 20130124
  Transmission Date: 20140127
  Serious: Yes (Life-Threatening)
  Sender: FDA-Public Use
  Company Number: PHHY2013NL005893

PATIENT
  Age: 69 Year
  Sex: Female

DRUGS (2)
  1. DICLOFENAC [Suspect]
     Indication: BACK PAIN
     Dosage: 50 MG, ONCE/SINGLE
     Route: 048
     Dates: start: 20111224, end: 20111224
  2. NAPROXEN [Interacting]
     Indication: BACK PAIN
     Dosage: 1 DF, ONCE/SINGLE
     Dates: start: 20111224, end: 20111224

REACTIONS (5)
  - Ischaemia [Recovered/Resolved]
  - Anaphylactic reaction [Recovered/Resolved]
  - Pharyngeal oedema [Recovered/Resolved]
  - Erythema [Recovered/Resolved]
  - Dizziness [Recovered/Resolved]
